FAERS Safety Report 9938569 (Version 1)
Quarter: 2014Q1

REPORT INFORMATION
  Report Type: Spontaneous
  Country: GR (occurrence: GR)
  Receive Date: 20140303
  Receipt Date: 20140303
  Transmission Date: 20141002
  Serious: Yes (Life-Threatening, Other)
  Sender: FDA-Public Use
  Company Number: GR-ASTRAZENECA-2014SE13159

PATIENT
  Sex: Female

DRUGS (2)
  1. LOSEC [Suspect]
     Route: 048
  2. MIRAPEXIN [Suspect]
     Route: 048

REACTIONS (2)
  - Exposure during pregnancy [Unknown]
  - Suicide attempt [Recovered/Resolved]
